FAERS Safety Report 23130483 (Version 1)
Quarter: 2023Q4

REPORT INFORMATION
  Report Type: Spontaneous
  Country: GB (occurrence: GB)
  Receive Date: 20231031
  Receipt Date: 20231031
  Transmission Date: 20240109
  Serious: Yes (Other)
  Sender: FDA-Public Use
  Company Number: GB-MHRA-TPP50056576C7459123YC1679057720291

PATIENT
  Age: 74 Year
  Sex: Male
  Weight: 118 kg

DRUGS (5)
  1. MORPHINE [Suspect]
     Active Substance: MORPHINE
     Indication: Ill-defined disorder
     Dosage: UNK
     Route: 065
     Dates: start: 20230317
  2. ATORVASTATIN [Concomitant]
     Active Substance: ATORVASTATIN
     Indication: Ill-defined disorder
     Dosage: ONE TO BE TAKEN EACH DAY
     Route: 065
     Dates: start: 20211207
  3. BISOPROLOL [Concomitant]
     Active Substance: BISOPROLOL\BISOPROLOL FUMARATE
     Indication: Ill-defined disorder
     Dosage: ONE TO BE TAKEN EACH DAY
     Route: 065
     Dates: start: 20211207
  4. OMEPRAZOLE [Concomitant]
     Active Substance: OMEPRAZOLE
     Indication: Ill-defined disorder
     Dosage: TAKE ONE CAPSULE DAILY. TAKE ALONGSIDE ANTI-INF...
     Route: 065
     Dates: start: 20230317
  5. RIVAROXABAN [Concomitant]
     Active Substance: RIVAROXABAN
     Indication: Ill-defined disorder
     Dosage: ONE TO BE TAKEN EACH DAY
     Route: 065
     Dates: start: 20211207

REACTIONS (1)
  - Syncope [Recovered/Resolved]

NARRATIVE: CASE EVENT DATE: 20230317
